FAERS Safety Report 12193637 (Version 1)
Quarter: 2016Q1

REPORT INFORMATION
  Report Type: Report from Study
  Country: DE (occurrence: DE)
  Receive Date: 20160321
  Receipt Date: 20160321
  Transmission Date: 20160526
  Serious: Yes (Death, Life-Threatening, Other)
  Sender: FDA-Public Use
  Company Number: DE-ROCHE-82541

PATIENT
  Age: 53 Year
  Sex: Female

DRUGS (4)
  1. INTERFERON ALFA-2A [Suspect]
     Active Substance: INTERFERON ALFA-2A
     Indication: NON-SMALL CELL LUNG CANCER
     Route: 058
     Dates: start: 1994, end: 1994
  2. ISOTRETINOIN [Suspect]
     Active Substance: ISOTRETINOIN
     Indication: SQUAMOUS CELL CARCINOMA
  3. ISOTRETINOIN [Suspect]
     Active Substance: ISOTRETINOIN
     Indication: NON-SMALL CELL LUNG CANCER
     Route: 048
     Dates: start: 1994, end: 1994
  4. INTERFERON ALFA-2A [Suspect]
     Active Substance: INTERFERON ALFA-2A
     Indication: SQUAMOUS CELL CARCINOMA

REACTIONS (8)
  - Chest discomfort [Recovering/Resolving]
  - Malignant neoplasm progression [Fatal]
  - Pulmonary toxicity [Recovering/Resolving]
  - Pulmonary fibrosis [Fatal]
  - Cough [Recovering/Resolving]
  - Dyspnoea [Recovering/Resolving]
  - Cardio-respiratory arrest [Fatal]
  - Radiation pneumonitis [Recovering/Resolving]

NARRATIVE: CASE EVENT DATE: 1994
